FAERS Safety Report 18380645 (Version 2)
Quarter: 2021Q4

REPORT INFORMATION
  Report Type: Report from Study
  Country: JP (occurrence: JP)
  Receive Date: 20201014
  Receipt Date: 20211230
  Transmission Date: 20220303
  Serious: No
  Sender: FDA-Public Use
  Company Number: JP-TEVA-2019-JP-1130119

PATIENT
  Age: 22 Year
  Sex: Female
  Weight: 52 kg

DRUGS (2)
  1. COPAXONE [Suspect]
     Active Substance: GLATIRAMER ACETATE
     Indication: Relapsing-remitting multiple sclerosis
     Dosage: 20 MILLIGRAM/MILLILITERS DAILY; ONGOING
     Route: 058
     Dates: start: 20191018
  2. XYZAL [Concomitant]
     Active Substance: LEVOCETIRIZINE DIHYDROCHLORIDE
     Dosage: ONGOING
     Dates: start: 20200117

REACTIONS (3)
  - Blood creatine phosphokinase increased [Recovered/Resolved]
  - Injection site erythema [Recovered/Resolved]
  - Injection site pruritus [Recovered/Resolved]

NARRATIVE: CASE EVENT DATE: 20191018
